FAERS Safety Report 5247439-2 (Version None)
Quarter: 2007Q1

REPORT INFORMATION
  Report Type: 
  Country: None (occurrence: None)
  Receive Date: 20070220
  Receipt Date: 20070206
  Transmission Date: 20070707
  Serious: Yes (Life-Threatening, Hospitalization)
  Sender: FDA-Public Use
  Company Number: POMP-10959

PATIENT
  Age: 17 Month
  Sex: Female

DRUGS (1)
  1. MYOZYME [Suspect]
     Indication: GLYCOGEN STORAGE DISEASE TYPE II
     Dosage: 20 MG/KG Q2WKS IV
     Route: 042
     Dates: start: 20050902

REACTIONS (5)
  - CARDIOMYOPATHY [None]
  - CONDITION AGGRAVATED [None]
  - PNEUMONIA [None]
  - RESPIRATORY FAILURE [None]
  - TRACHEITIS [None]
